FAERS Safety Report 9395964 (Version 1)
Quarter: 2013Q3

REPORT INFORMATION
  Report Type: Spontaneous
  Country: US (occurrence: US)
  Receive Date: 20130711
  Receipt Date: 20130711
  Transmission Date: 20140515
  Serious: Yes (Other)
  Sender: FDA-Public Use
  Company Number: US-PFIZER INC-2013204102

PATIENT
  Age: 71 Year
  Sex: Female
  Weight: 99.77 kg

DRUGS (2)
  1. LYRICA [Suspect]
     Indication: FIBROMYALGIA
     Dosage: 75 MG, 2X/DAY
     Route: 048
     Dates: start: 201209, end: 20130702
  2. LYRICA [Suspect]
     Indication: DIABETIC NEUROPATHY

REACTIONS (2)
  - Weight increased [Unknown]
  - Vision blurred [Unknown]
